FAERS Safety Report 10197503 (Version 1)
Quarter: 2014Q2

REPORT INFORMATION
  Report Type: Spontaneous
  Country: US (occurrence: None)
  Receive Date: 20140523
  Receipt Date: 20140523
  Transmission Date: 20141212
  Serious: Yes (Disabling)
  Sender: FDA-Public Use
  Company Number: None

PATIENT
  Age: 36 Year
  Sex: Female
  Weight: 90.27 kg

DRUGS (2)
  1. LAMOTRIGINE [Suspect]
     Indication: BIPOLAR II DISORDER
     Dosage: 1 PILL PER DAY ONCE DAILY TAKEN BY MOUTH
     Route: 048
  2. ABILIFY [Suspect]
     Route: 048
     Dates: start: 20140509, end: 20140522

REACTIONS (4)
  - Eosinophilia [None]
  - Thyrotoxic crisis [None]
  - Pyrexia [None]
  - Drug intolerance [None]
